FAERS Safety Report 10077422 (Version 2)
Quarter: 2014Q2

REPORT INFORMATION
  Report Type: Spontaneous
  Country: US (occurrence: US)
  Receive Date: 20140414
  Receipt Date: 20140414
  Transmission Date: 20141212
  Serious: No
  Sender: FDA-Public Use
  Company Number: US-BANPHARM-20131497

PATIENT
  Age: 76 Year
  Sex: Male

DRUGS (3)
  1. ALEVE LIQUID GELS 220 MG [Suspect]
     Indication: PAIN
     Dosage: 2 DF, QD,
     Route: 048
     Dates: start: 20130711
  2. GOUT MEDICATION [Concomitant]
  3. VITAMINS [Concomitant]

REACTIONS (1)
  - Drug ineffective [Unknown]
